FAERS Safety Report 14533245 (Version 1)
Quarter: 2018Q1

REPORT INFORMATION
  Report Type: Report from Study
  Country: None (occurrence: DE)
  Receive Date: 20180215
  Receipt Date: 20180215
  Transmission Date: 20180509
  Serious: Yes (Hospitalization)
  Sender: FDA-Public Use
  Company Number: DE-ABBVIE-18K-062-2255612-00

PATIENT
  Sex: Male

DRUGS (1)
  1. DUODOPA [Suspect]
     Active Substance: CARBIDOPA\LEVODOPA
     Indication: PARKINSON^S DISEASE
     Dosage: MD 8.0 ML; CRD 4.2 ML/H, ED 1.3 ML
     Route: 050
     Dates: start: 20160201

REACTIONS (2)
  - Bleeding varicose vein [Recovered/Resolved]
  - Prostatomegaly [Recovered/Resolved]
